FAERS Safety Report 21302299 (Version 1)
Quarter: 2022Q3

REPORT INFORMATION
  Report Type: Spontaneous
  Country: US (occurrence: None)
  Receive Date: 20220906
  Receipt Date: 20220906
  Transmission Date: 20221026
  Serious: Yes (Hospitalization, Disabling)
  Sender: FDA-Public Use
  Company Number: None

PATIENT
  Age: 23 Year
  Sex: Female
  Weight: 37.35 kg

DRUGS (5)
  1. CITROMA MAGNESIUM CITRATE [Suspect]
     Active Substance: MAGNESIUM CITRATE
     Indication: Constipation
     Dosage: OTHER QUANTITY : 10 OUNCE(S);?FREQUENCY : AS NEEDED;?
     Route: 048
     Dates: start: 20220624, end: 20220624
  2. Mycophenolic Mofetil [Concomitant]
  3. PLAQUENIL [Concomitant]
     Active Substance: HYDROXYCHLOROQUINE SULFATE
  4. AMLODIPINE BESYLATE [Concomitant]
  5. CLONAZEPAM [Concomitant]
     Active Substance: CLONAZEPAM

REACTIONS (8)
  - Deafness unilateral [None]
  - Gait disturbance [None]
  - Dizziness [None]
  - Vertigo [None]
  - Diarrhoea [None]
  - Vomiting [None]
  - Labyrinthitis [None]
  - Nerve injury [None]

NARRATIVE: CASE EVENT DATE: 20220627
